FAERS Safety Report 25437807 (Version 2)
Quarter: 2025Q3

REPORT INFORMATION
  Report Type: Spontaneous
  Country: EU (occurrence: EU)
  Receive Date: 20250616
  Receipt Date: 20250804
  Transmission Date: 20251020
  Serious: Yes (Hospitalization, Other)
  Sender: AUROBINDO
  Company Number: EU-DCGMA-25205246

PATIENT
  Sex: Male
  Weight: 99 kg

DRUGS (4)
  1. AMLODIPINE BESYLATE [Suspect]
     Active Substance: AMLODIPINE BESYLATE
     Indication: Product used for unknown indication
     Route: 065
  2. SIMVASTATIN [Suspect]
     Active Substance: SIMVASTATIN
     Indication: Product used for unknown indication
     Route: 065
  3. ATORVASTATIN [Suspect]
     Active Substance: ATORVASTATIN
     Indication: Product used for unknown indication
     Route: 065
  4. ATORVASTATIN\EZETIMIBE [Suspect]
     Active Substance: ATORVASTATIN\EZETIMIBE
     Indication: Product used for unknown indication
     Route: 065
     Dates: start: 20240312

REACTIONS (3)
  - Drug-induced liver injury [Recovering/Resolving]
  - Duplicate therapy error [Not Recovered/Not Resolved]
  - Product communication issue [Not Recovered/Not Resolved]

NARRATIVE: CASE EVENT DATE: 20240702
